FAERS Safety Report 15049617 (Version 2)
Quarter: 2019Q4

REPORT INFORMATION
  Report Type: Spontaneous
  Country: CA (occurrence: CA)
  Receive Date: 20180622
  Receipt Date: 20191224
  Transmission Date: 20200122
  Serious: Yes (Disabling)
  Sender: FDA-Public Use
  Company Number: CA-TEVA-2018-CA-909829

PATIENT
  Age: 77 Year
  Sex: Female

DRUGS (6)
  1. ATACAND [Concomitant]
     Active Substance: CANDESARTAN CILEXETIL
  2. SOTALOL. [Concomitant]
     Active Substance: SOTALOL
  3. LEVETIRACETAM. [Suspect]
     Active Substance: LEVETIRACETAM
     Indication: PAIN
     Route: 048
  4. FUROSEMIDE. [Concomitant]
     Active Substance: FUROSEMIDE
  5. PHENOBARBITAL. [Concomitant]
     Active Substance: PHENOBARBITAL
  6. WARFARIN [Concomitant]
     Active Substance: WARFARIN

REACTIONS (2)
  - Product substitution issue [Recovered/Resolved]
  - Gastrooesophageal reflux disease [Recovered/Resolved]
